APPROVED DRUG PRODUCT: ACETYLCYSTEINE
Active Ingredient: ACETYLCYSTEINE
Strength: 10%
Dosage Form/Route: SOLUTION;INHALATION, ORAL
Application: A071364 | Product #001
Applicant: HOSPIRA INC
Approved: May 1, 1989 | RLD: No | RS: No | Type: DISCN